FAERS Safety Report 7001759-X (Version None)
Quarter: 2010Q3

REPORT INFORMATION
  Report Type: 
  Country: None (occurrence: None)
  Receive Date: 20100920
  Receipt Date: 20100331
  Transmission Date: 20110219
  Serious: Yes (Hospitalization, Other)
  Sender: FDA-Public Use
  Company Number: US-ASTRAZENECA-2009SE16611

PATIENT
  Age: 27867 Day
  Sex: Male

DRUGS (5)
  1. SEROQUEL [Suspect]
     Route: 048
     Dates: start: 20081202
  2. SIMVASTATIN [Concomitant]
     Route: 048
     Dates: start: 20081202
  3. ATENOLOL [Concomitant]
     Route: 048
     Dates: start: 20081202
  4. PLAVIX [Concomitant]
     Dosage: 75 MG, 1 TAB ,DAILY WITH FOOD
     Route: 048
     Dates: start: 20081202
  5. NITROGLYCERIN [Concomitant]
     Route: 060
     Dates: start: 20081202

REACTIONS (2)
  - DIABETES MELLITUS [None]
  - HYPERGLYCAEMIA [None]
